FAERS Safety Report 4323690-0 (Version None)
Quarter: 2004Q1

REPORT INFORMATION
  Report Type: 
  Country: None (occurrence: None)
  Receive Date: 20040324
  Receipt Date: 20040324
  Transmission Date: 20041129
  Serious: Yes (Other)
  Sender: FDA-Public Use
  Company Number: None

PATIENT
  Age: 15 Year
  Sex: Female
  Weight: 49.8957 kg

DRUGS (2)
  1. CORICIDIN COUGH AND COLD TABLETS [Suspect]
     Dosage: 16 TABLETS ORAL
     Route: 048
     Dates: start: 20040316, end: 20040316
  2. CORICIDIN HBP COLD AND FLU (CHLORPHENIRAMINE/ACTAMINO TABLETS [Suspect]
     Dosage: 12 TABLETS ORAL
     Route: 048
     Dates: start: 20040316, end: 20040316

REACTIONS (3)
  - HEART RATE INCREASED [None]
  - INCOHERENT [None]
  - OVERDOSE [None]
